FAERS Safety Report 8987836 (Version 2)
Quarter: 2013Q2

REPORT INFORMATION
  Report Type: Spontaneous
  Country: US (occurrence: US)
  Receive Date: 20121227
  Receipt Date: 20130423
  Transmission Date: 20140414
  Serious: Yes (Death, Hospitalization)
  Sender: FDA-Public Use
  Company Number: US-GLAXOSMITHKLINE-A1006050A

PATIENT
  Age: 81 Year
  Sex: Male

DRUGS (9)
  1. ADVAIR [Suspect]
     Indication: PULMONARY FIBROSIS
     Dosage: 1PUFF TWICE PER DAY
     Route: 055
     Dates: start: 2007
  2. LIPITOR [Concomitant]
  3. PREDNISONE [Concomitant]
  4. SERTRALINE [Concomitant]
  5. LYRICA [Concomitant]
  6. GABAPENTIN [Concomitant]
  7. ASPIRIN [Concomitant]
  8. VICODIN [Concomitant]
  9. COLCHICINE [Concomitant]

REACTIONS (8)
  - Death [Fatal]
  - Blindness [Unknown]
  - Herpes zoster [Recovered/Resolved]
  - Neck pain [Unknown]
  - Headache [Unknown]
  - Visual impairment [Unknown]
  - Trismus [Unknown]
  - Off label use [Unknown]
